FAERS Safety Report 6253634-6 (Version None)
Quarter: 2009Q3

REPORT INFORMATION
  Report Type: 
  Country: None (occurrence: None)
  Receive Date: 20090701
  Receipt Date: 20090619
  Transmission Date: 20100115
  Serious: Yes (Other)
  Sender: FDA-Public Use
  Company Number: US-PFIZER INC-2009232746

PATIENT
  Sex: Female
  Weight: 54.431 kg

DRUGS (3)
  1. LYRICA [Suspect]
     Indication: COMPLEX REGIONAL PAIN SYNDROME
     Dosage: FREQUENCY: 2X/DAY, EVERYDAY;
     Route: 048
     Dates: start: 20090101
  2. CYMBALTA [Suspect]
     Dosage: 60 MG, 1X/DAY
     Route: 048
     Dates: end: 20090601
  3. WELLBUTRIN [Concomitant]
     Route: 048

REACTIONS (2)
  - BLEEDING TIME PROLONGED [None]
  - CAPILLARY DISORDER [None]
